FAERS Safety Report 17134492 (Version 1)
Quarter: 2019Q4

REPORT INFORMATION
  Report Type: Spontaneous
  Country: ES (occurrence: ES)
  Receive Date: 20191210
  Receipt Date: 20191210
  Transmission Date: 20200122
  Serious: Yes (Other)
  Sender: FDA-Public Use
  Company Number: ES-PFIZER INC-2019500250

PATIENT
  Age: 81 Year
  Sex: Male

DRUGS (9)
  1. ZOLPIDEM [Concomitant]
     Active Substance: ZOLPIDEM TARTRATE
     Dosage: 10 MG, DAILY (0-0-1)
  2. BOSUTINIB [Suspect]
     Active Substance: BOSUTINIB
     Dosage: 500 MG, UNK
  3. TORASEMIDE [Concomitant]
     Active Substance: TORSEMIDE
     Dosage: 10 MG, DAILY (1-0-0)
  4. BOSUTINIB [Suspect]
     Active Substance: BOSUTINIB
     Dosage: 400 MG, DAILY (EVERY 24 HOURS)
     Dates: start: 20190801, end: 2019
  5. DIOVAN [Concomitant]
     Active Substance: VALSARTAN
     Dosage: UNK, 1X/DAY (1-0-0)
  6. MANIDIPINO [Concomitant]
     Active Substance: MANIDIPINE
     Dosage: 10 MG, DAILY (0-0-1)
  7. BOSUTINIB [Suspect]
     Active Substance: BOSUTINIB
     Dosage: 300 MG, DAILY (EVERY 24 HOURS)
     Dates: start: 20191002, end: 2019
  8. ALOPURINOL ARENA [Concomitant]
     Active Substance: ALLOPURINOL
     Dosage: 100 MG, DAILY (0-1-0)
  9. BOSUTINIB [Suspect]
     Active Substance: BOSUTINIB
     Dosage: 200 MG, DAILY (EVERY 24 HOURS)
     Dates: start: 2019, end: 2019

REACTIONS (9)
  - Temperature regulation disorder [Unknown]
  - Pleural effusion [Unknown]
  - Diarrhoea [Unknown]
  - Vomiting [Unknown]
  - Hyperkalaemia [Not Recovered/Not Resolved]
  - Renal failure [Recovered/Resolved]
  - Anaemia [Unknown]
  - Rash [Unknown]
  - Chronic kidney disease [Unknown]
